FAERS Safety Report 12351260 (Version 1)
Quarter: 2016Q2

REPORT INFORMATION
  Report Type: Spontaneous
  Country: US (occurrence: None)
  Receive Date: 20160509
  Receipt Date: 20160509
  Transmission Date: 20160815
  Serious: No
  Sender: FDA-Public Use
  Company Number: None

PATIENT
  Age: 84 Year
  Sex: Female

DRUGS (6)
  1. DACOGEN [Concomitant]
     Active Substance: DECITABINE
  2. JADENU [Suspect]
     Active Substance: DEFERASIROX
     Indication: CHELATION THERAPY
     Route: 048
     Dates: start: 20160114
  3. HYDROCO/APAP [Concomitant]
     Active Substance: ACETAMINOPHEN\HYDROCODONE
  4. ARANESP [Concomitant]
     Active Substance: DARBEPOETIN ALFA
  5. VESICARE [Concomitant]
     Active Substance: SOLIFENACIN SUCCINATE
  6. NEUPOGEN [Concomitant]
     Active Substance: FILGRASTIM

REACTIONS (2)
  - Cardiac disorder [None]
  - Dyspepsia [None]

NARRATIVE: CASE EVENT DATE: 20160504
